FAERS Safety Report 9975576 (Version 1)
Quarter: 2014Q1

REPORT INFORMATION
  Report Type: Report from Study
  Country: US (occurrence: US)
  Receive Date: 20140306
  Receipt Date: 20140306
  Transmission Date: 20141002
  Serious: No
  Sender: FDA-Public Use
  Company Number: US-ABBVIE-13P-163-1158617-00

PATIENT
  Age: 31 Year
  Sex: Female

DRUGS (5)
  1. HUMIRA [Suspect]
     Indication: CROHN^S DISEASE
     Dates: start: 20130826, end: 20130826
  2. HUMIRA [Suspect]
     Dates: start: 20130909, end: 20130909
  3. HUMIRA [Suspect]
     Dates: start: 20130923
  4. HUMIRA [Suspect]
     Dates: start: 20131007
  5. NORETHISTERONE W/MESTRANOL [Concomitant]
     Indication: PRODUCT USED FOR UNKNOWN INDICATION

REACTIONS (2)
  - Respiratory tract congestion [Not Recovered/Not Resolved]
  - Feeling abnormal [Not Recovered/Not Resolved]
